FAERS Safety Report 19183305 (Version 4)
Quarter: 2021Q4

REPORT INFORMATION
  Report Type: Report from Study
  Country: US (occurrence: US)
  Receive Date: 20210427
  Receipt Date: 20211118
  Transmission Date: 20220303
  Serious: Yes (Death, Hospitalization, Other)
  Sender: FDA-Public Use
  Company Number: US-ACADIA PHARMACEUTICALS INC.-ACA-2021-PIM-001295

PATIENT
  Age: 79 Year
  Sex: Male

DRUGS (13)
  1. NUPLAZID [Suspect]
     Active Substance: PIMAVANSERIN TARTRATE
     Indication: Parkinson^s disease psychosis
     Dosage: 34 MILLIGRAM, QD
     Route: 048
     Dates: start: 202102, end: 202104
  2. NUPLAZID [Suspect]
     Active Substance: PIMAVANSERIN TARTRATE
     Indication: Hallucination
     Dosage: 34 MILLIGRAM, QD
     Route: 048
  3. NUPLAZID [Suspect]
     Active Substance: PIMAVANSERIN TARTRATE
     Indication: Delusion
  4. PEPCID AC [Concomitant]
     Active Substance: FAMOTIDINE
  5. CARBIDOPA\LEVODOPA [Concomitant]
     Active Substance: CARBIDOPA\LEVODOPA
  6. DONEPEZIL [Concomitant]
     Active Substance: DONEPEZIL
  7. CLONAZEPAM [Concomitant]
     Active Substance: CLONAZEPAM
  8. FINASTERIDE [Concomitant]
     Active Substance: FINASTERIDE
  9. ADVIL [Concomitant]
     Active Substance: IBUPROFEN
  10. AMLODIPINE [Concomitant]
     Active Substance: AMLODIPINE BESYLATE
  11. ATENOLOL [Concomitant]
     Active Substance: ATENOLOL
  12. SINEMET [Concomitant]
     Active Substance: CARBIDOPA\LEVODOPA
  13. NITROSTAT [Concomitant]
     Active Substance: NITROGLYCERIN

REACTIONS (8)
  - Sarcoma [Recovered/Resolved]
  - Thrombosis [Recovered/Resolved]
  - Gastric disorder [Unknown]
  - Therapeutic response unexpected [Unknown]
  - Urinary incontinence [Unknown]
  - Dysstasia [Not Recovered/Not Resolved]
  - Gait disturbance [Unknown]
  - Peripheral swelling [Recovering/Resolving]

NARRATIVE: CASE EVENT DATE: 20210803
